FAERS Safety Report 24263409 (Version 1)
Quarter: 2024Q3

REPORT INFORMATION
  Report Type: Spontaneous
  Country: US (occurrence: None)
  Receive Date: 20240828
  Receipt Date: 20240828
  Transmission Date: 20241017
  Serious: Yes (Other)
  Sender: Public
  Company Number: None

PATIENT
  Age: 68 Year
  Sex: Female
  Weight: 56.25 kg

DRUGS (12)
  1. ELIQUIS [Suspect]
     Active Substance: APIXABAN
     Indication: Pulmonary thrombosis
     Dosage: OTHER QUANTITY : 1 PILL;?FREQUENCY : TWICE A DAY;?
     Route: 048
     Dates: start: 20240109
  2. ELIQUIS [Suspect]
     Active Substance: APIXABAN
     Indication: Deep vein thrombosis
  3. VITAMIN D [Concomitant]
     Active Substance: VITAMIN D NOS
  4. OMEPRAZOLE [Concomitant]
     Active Substance: OMEPRAZOLE
  5. BANOPHEN [Concomitant]
  6. Hakoperiodol [Concomitant]
  7. GABAPENTIN [Concomitant]
  8. Spronolactone [Concomitant]
  9. Fursoemide [Concomitant]
  10. TRAMADOL [Concomitant]
  11. BIOTIN [Concomitant]
  12. TYLENOL ARTHRITIS PAIN [Concomitant]
     Active Substance: ACETAMINOPHEN

REACTIONS (2)
  - Alopecia [None]
  - Alopecia [None]

NARRATIVE: CASE EVENT DATE: 20240201
